FAERS Safety Report 10373682 (Version 1)
Quarter: 2014Q1

REPORT INFORMATION
  Report Type: Spontaneous
  Country: US (occurrence: None)
  Receive Date: 20140306
  Receipt Date: 20140306
  Transmission Date: 20141002
  Serious: Yes (Other)
  Sender: FDA-Public Use
  Company Number: 163-21880-13050844

PATIENT
  Age: 76 Year
  Sex: Female
  Weight: 67.72 kg

DRUGS (15)
  1. REVLIMID (LENALIDOMIDE) (25 MILLIGRAM, CAPSULES) [Suspect]
     Indication: PLASMA CELL MYELOMA
     Dosage: 25 MG, 21 IN 28 D, PO
     Route: 048
     Dates: start: 20130131, end: 20130411
  2. AMOXICILLIN-POT CLAVULANATE (CLAVULIN) [Concomitant]
  3. MIRALAX (MACROGOL) [Concomitant]
  4. MULTIVITAMINS GUMMIES (MULTIVITAMINS) [Concomitant]
  5. NEXIUM (ESOMEPRAZOLE) [Concomitant]
  6. OXYCODONE HCL (OXYCODONE HYDROCHLORIDE) [Concomitant]
  7. POTASSIUM CHLORIDE [Concomitant]
  8. VALIUM (DIAZEPAM) [Concomitant]
  9. SENNA [Concomitant]
  10. NORMAL SALINE (SODIUM CHLORIDE) [Concomitant]
  11. HEPARIN [Concomitant]
  12. ZOMETA (ZOLEDRONIC ACID) [Concomitant]
  13. VELCADE (BORTEZOMIB) (INJECTION) [Concomitant]
  14. ZOFRAN (ONDANSETRON HYDROCHLORIDE) (INJECTION) [Concomitant]
  15. DEXAMETHASONE (INJECTION) [Concomitant]

REACTIONS (4)
  - Anaemia [None]
  - Dizziness [None]
  - Nausea [None]
  - Asthenia [None]
